FAERS Safety Report 17375650 (Version 1)
Quarter: 2020Q1

REPORT INFORMATION
  Report Type: Spontaneous
  Country: CH (occurrence: CH)
  Receive Date: 20200206
  Receipt Date: 20200206
  Transmission Date: 20200409
  Serious: Yes (Hospitalization)
  Sender: FDA-Public Use
  Company Number: CH-ROCHE-2537371

PATIENT
  Age: 29 Year
  Sex: Male

DRUGS (3)
  1. RIVOTRIL [Suspect]
     Active Substance: CLONAZEPAM
     Indication: PRODUCT USED FOR UNKNOWN INDICATION
     Dosage: 1 TABLET OF RIVOTRIL 2 MG TAKEN WITH SUICIDAL INTENT
     Route: 048
     Dates: start: 20191205, end: 20191205
  2. SEROQUEL [Suspect]
     Active Substance: QUETIAPINE FUMARATE
     Indication: PRODUCT USED FOR UNKNOWN INDICATION
     Dosage: 5 TABLETS OF SEROQUEL 50 MG TAKEN (TOTAL 250 MG) IN A SINGLE DOSE WITH SUICIDAL INTENT
     Route: 048
     Dates: start: 20191205, end: 20191205
  3. DAFALGAN [Suspect]
     Active Substance: ACETAMINOPHEN
     Indication: PRODUCT USED FOR UNKNOWN INDICATION
     Dosage: 16 TABLETS OF DAFALGAN 1 G TAKEN (TOTAL 16 G) IN A SINGLE DOSE WITH SUICIDAL INTENT
     Route: 048
     Dates: start: 20191205, end: 20191205

REACTIONS (3)
  - Suicide attempt [Unknown]
  - Somnolence [Recovered/Resolved]
  - Intentional product misuse [Unknown]

NARRATIVE: CASE EVENT DATE: 20191205
